FAERS Safety Report 14186463 (Version 1)
Quarter: 2017Q4

REPORT INFORMATION
  Report Type: Spontaneous
  Country: US (occurrence: US)
  Receive Date: 20171114
  Receipt Date: 20171114
  Transmission Date: 20180321
  Serious: Yes (Other)
  Sender: FDA-Public Use
  Company Number: US-PFIZER INC-2017484321

PATIENT
  Age: 62 Year
  Sex: Male
  Weight: 99.79 kg

DRUGS (8)
  1. GABAPENTIN. [Suspect]
     Active Substance: GABAPENTIN
     Dosage: 300 MG, ONE IN THE MORNING, ONE AT NIGHT
  2. METOPROLOL. [Concomitant]
     Active Substance: METOPROLOL
     Indication: CARDIAC DISORDER
     Dosage: 25 MG, 1X/DAY
  3. GABAPENTIN. [Suspect]
     Active Substance: GABAPENTIN
     Indication: NEUROPATHY PERIPHERAL
     Dosage: 300MG CAPSULES, ONE IN THE MORNING, ONE AT LUNCH TIME AND TWO AT NIGHT
     Route: 048
  4. METFORMIN [Concomitant]
     Active Substance: METFORMIN HYDROCHLORIDE
     Indication: DIABETES MELLITUS
  5. REPATHA [Concomitant]
     Active Substance: EVOLOCUMAB
     Indication: BLOOD CHOLESTEROL ABNORMAL
     Dosage: 420 MG, MONTHLY
  6. ELIQUIS [Concomitant]
     Active Substance: APIXABAN
     Indication: CARDIAC DISORDER
     Dosage: 10 MG, DAILY (5MG, TWO A DAY)
  7. GABAPENTIN. [Suspect]
     Active Substance: GABAPENTIN
     Dosage: 300 MG, ONE IN THE MORNING AND TWO AT NIGHT
  8. LOSARTAN. [Concomitant]
     Active Substance: LOSARTAN
     Indication: CARDIAC DISORDER
     Dosage: 50 MG, 1X/DAY
     Route: 048

REACTIONS (6)
  - Middle insomnia [Recovering/Resolving]
  - Abnormal dreams [Recovered/Resolved]
  - Atrial fibrillation [Not Recovered/Not Resolved]
  - Drug ineffective for unapproved indication [Unknown]
  - Neuropathy peripheral [Unknown]
  - Condition aggravated [Unknown]

NARRATIVE: CASE EVENT DATE: 201605
